FAERS Safety Report 18547510 (Version 5)
Quarter: 2023Q1

REPORT INFORMATION
  Report Type: Report from Study
  Country: US (occurrence: US)
  Receive Date: 20201125
  Receipt Date: 20230110
  Transmission Date: 20230418
  Serious: Yes (Hospitalization, Other)
  Sender: FDA-Public Use
  Company Number: US-BAUSCH-BL-2020-034351

PATIENT
  Age: 73 Year
  Sex: Female
  Weight: 95.794 kg

DRUGS (21)
  1. XIFAXAN [Suspect]
     Active Substance: RIFAXIMIN
     Indication: Hepatic encephalopathy
     Route: 048
     Dates: start: 201909
  2. XIFAXAN [Suspect]
     Active Substance: RIFAXIMIN
     Route: 048
  3. METFORMIN [Suspect]
     Active Substance: METFORMIN HYDROCHLORIDE
     Indication: Product used for unknown indication
     Dosage: ONE TIMES PER DAY WITH MORNING AND EVENING MEALS
     Route: 048
  4. VITAMIN D [Concomitant]
     Active Substance: VITAMIN D NOS
     Indication: Product used for unknown indication
  5. FUROSEMIDE [Concomitant]
     Active Substance: FUROSEMIDE
     Indication: Product used for unknown indication
     Dosage: 2 TABLETS EVERY DAY
     Route: 048
  6. FUROSEMIDE [Concomitant]
     Active Substance: FUROSEMIDE
     Dosage: TAKE 1 TABLET BY MOUTH THREE TIMES DAILY
     Route: 048
  7. LACTULOSE [Concomitant]
     Active Substance: LACTULOSE
     Indication: Hepatic encephalopathy
     Dosage: 10 GRAM/15 ML (15ML) ORAL SOLUTION
     Route: 048
  8. LACTULOSE [Concomitant]
     Active Substance: LACTULOSE
     Dosage: 10 GRAM/15 ML (15ML) ORAL SOLUTION
     Route: 048
  9. SPIRONOLACTONE [Concomitant]
     Active Substance: SPIRONOLACTONE
     Indication: Product used for unknown indication
     Dosage: 2 TABLETS (50MG) DAILY
     Route: 048
  10. SPIRONOLACTONE [Concomitant]
     Active Substance: SPIRONOLACTONE
     Dosage: TAKE 1 TABLET IN THE MORNING AND 2 TABLETS IN THE EVENING
     Route: 048
  11. PANTOPRAZOLE [Concomitant]
     Active Substance: PANTOPRAZOLE
     Indication: Product used for unknown indication
     Dosage: ENTERIC COATED
     Route: 048
  12. ALBUTEROL SULFATE [Concomitant]
     Active Substance: ALBUTEROL SULFATE
     Indication: Product used for unknown indication
     Dosage: 1 TABLET, PRN
  13. ZYRTEC [Concomitant]
     Active Substance: CETIRIZINE HYDROCHLORIDE
     Indication: Product used for unknown indication
     Dosage: 1/2 TABLET, PRN
  14. BACTRIM DS [Concomitant]
     Active Substance: SULFAMETHOXAZOLE\TRIMETHOPRIM
     Indication: Product used for unknown indication
     Dosage: 800-160 MG, (TAKE 1 TABLET BY ORAL ROUTE 2 TIMES PER DAY)
     Route: 048
  15. TRAMADOL [Concomitant]
     Active Substance: TRAMADOL
     Indication: Product used for unknown indication
     Dosage: TAKE 1 TABLET (50 MG) BY ORAL ROUTE BID
     Route: 048
  16. ZINC 220 [Concomitant]
     Indication: Product used for unknown indication
     Dosage: TAKE 1 CAPSULE QD
     Route: 048
  17. TWINRIX [Concomitant]
     Active Substance: HEPATITIS A VIRUS STRAIN HM175 ANTIGEN (FORMALDEHYDE INACTIVATED)\HEPATITIS B VIRUS SUBTYPE ADW2 HBS
     Indication: Product used for unknown indication
     Dosage: TWINRIX (PF), 720 ELISA UNIT, 20 MCG/ML  INTRAMUSCULAR SYRINGE AS DIRECTED
     Route: 030
  18. COVID-19 VACCINE NOS [Concomitant]
     Active Substance: COVID-19 VACCINE NOS
     Indication: COVID-19 immunisation
     Dosage: COVID-19, MRNA, LNP-S, PF, 30 MCG/0.3ML DOSE
     Dates: start: 20210714
  19. HEPATITIS A [Concomitant]
     Indication: Product used for unknown indication
     Dates: start: 20220105
  20. HEPATITIS-B [Concomitant]
     Indication: Product used for unknown indication
     Dates: start: 20220105
  21. ONDANSETRON [Concomitant]
     Active Substance: ONDANSETRON
     Indication: Product used for unknown indication
     Dosage: 2 TABS PRN DAILY

REACTIONS (21)
  - Spinal operation [Unknown]
  - Hepatic encephalopathy [Not Recovered/Not Resolved]
  - Disease recurrence [Not Recovered/Not Resolved]
  - Asthenia [Unknown]
  - Hepatocellular carcinoma [Unknown]
  - Lumbar vertebral fracture [Unknown]
  - Aortic arteriosclerosis [Unknown]
  - Increased tendency to bruise [Recovered/Resolved]
  - Gastrooesophageal reflux disease [Unknown]
  - Depression [Recovered/Resolved]
  - Anxiety [Recovered/Resolved]
  - Abdominal distension [Unknown]
  - Constipation [Unknown]
  - Abdominal discomfort [Unknown]
  - Peripheral swelling [Unknown]
  - Memory impairment [Unknown]
  - Cardiomegaly [Unknown]
  - Aortic disorder [Unknown]
  - Spinal osteoarthritis [Unknown]
  - Inability to afford medication [Unknown]
  - Insurance issue [Unknown]

NARRATIVE: CASE EVENT DATE: 20200311
